FAERS Safety Report 17453809 (Version 1)
Quarter: 2020Q1

REPORT INFORMATION
  Report Type: Spontaneous
  Country: US (occurrence: US)
  Receive Date: 20200224
  Receipt Date: 20200224
  Transmission Date: 20200409
  Serious: No
  Sender: FDA-Public Use
  Company Number: US-GLAXOSMITHKLINE-A0735635A

PATIENT
  Sex: Male

DRUGS (1)
  1. BUPROPION MODIFIED-RELEASE TABLET [Suspect]
     Active Substance: BUPROPION
     Indication: DEPRESSION
     Dosage: 300 MG, 1D
     Route: 048

REACTIONS (2)
  - Depression [Unknown]
  - Tobacco user [Unknown]
